FAERS Safety Report 13377642 (Version 1)
Quarter: 2017Q1

REPORT INFORMATION
  Report Type: Spontaneous
  Country: US (occurrence: US)
  Receive Date: 20170328
  Receipt Date: 20170328
  Transmission Date: 20170429
  Serious: Yes (Other)
  Sender: FDA-Public Use
  Company Number: US-JNJFOC-20170327730

PATIENT
  Sex: Female
  Weight: 109.55 kg

DRUGS (4)
  1. REMICADE [Suspect]
     Active Substance: INFLIXIMAB
     Indication: SARCOIDOSIS
     Route: 042
     Dates: start: 20170228
  2. REMICADE [Suspect]
     Active Substance: INFLIXIMAB
     Indication: CUTANEOUS SARCOIDOSIS
     Route: 042
     Dates: start: 2007
  3. REMICADE [Suspect]
     Active Substance: INFLIXIMAB
     Indication: CUTANEOUS SARCOIDOSIS
     Route: 042
     Dates: start: 20170228
  4. REMICADE [Suspect]
     Active Substance: INFLIXIMAB
     Indication: SARCOIDOSIS
     Route: 042
     Dates: start: 2007

REACTIONS (11)
  - Fall [Unknown]
  - Off label use [Unknown]
  - Stress [Unknown]
  - Tendon rupture [Not Recovered/Not Resolved]
  - Cough [Not Recovered/Not Resolved]
  - Ear infection [Unknown]
  - Drug ineffective [Unknown]
  - Skin lesion [Recovering/Resolving]
  - Back pain [Not Recovered/Not Resolved]
  - Product use issue [Unknown]
  - Musculoskeletal pain [Unknown]

NARRATIVE: CASE EVENT DATE: 2007
